FAERS Safety Report 6306495-0 (Version None)
Quarter: 2009Q3

REPORT INFORMATION
  Report Type: 
  Country: None (occurrence: None)
  Receive Date: 20090812
  Receipt Date: 20090804
  Transmission Date: 20100115
  Serious: Yes (Death)
  Sender: FDA-Public Use
  Company Number: JP-BRISTOL-MYERS SQUIBB COMPANY-14727960

PATIENT
  Age: 32 Year
  Sex: Male

DRUGS (3)
  1. ABILIFY [Suspect]
     Indication: SCHIZOPHRENIA
     Route: 048
     Dates: start: 20060901, end: 20090720
  2. GASMOTIN [Concomitant]
     Dosage: TABLET
  3. PARIET [Concomitant]
     Dosage: FORM-TAB.

REACTIONS (1)
  - SUDDEN DEATH [None]
